FAERS Safety Report 19619076 (Version 1)
Quarter: 2021Q3

REPORT INFORMATION
  Report Type: Spontaneous
  Country: US (occurrence: US)
  Receive Date: 20210728
  Receipt Date: 20210728
  Transmission Date: 20211014
  Serious: Yes (Death, Life-Threatening, Hospitalization, Other)
  Sender: FDA-Public Use
  Company Number: US-HIKMA PHARMACEUTICALS USA INC.-US-H14001-21-55027

PATIENT
  Age: 65 Year
  Sex: Male

DRUGS (3)
  1. HEPARIN [Suspect]
     Active Substance: HEPARIN SODIUM
     Indication: CORONARY ARTERY DISEASE
     Dosage: 11,750 U OF UNFRACTIONATED HEPARIN
     Route: 065
  2. HEPARIN [Suspect]
     Active Substance: HEPARIN SODIUM
     Indication: CARDIOPULMONARY BYPASS
     Dosage: 52,000 U OF UNFRACTIONATED HEPARIN
     Route: 065
  3. HEPARIN [Suspect]
     Active Substance: HEPARIN SODIUM
     Dosage: HEPARIN INFUSION OF 500 U/H WAS STARTED ON POSTOPERATIVE DAY (POD) 1 AND DISCONTINUED ON POD 13
     Route: 065

REACTIONS (7)
  - Hypotension [Unknown]
  - Atrial fibrillation [Recovered/Resolved]
  - Renal tubular necrosis [Fatal]
  - Renal failure [Fatal]
  - Mitral valve stenosis [Recovering/Resolving]
  - Heparin-induced thrombocytopenia [Recovered/Resolved]
  - Peripheral artery occlusion [Recovering/Resolving]
